FAERS Safety Report 19387055 (Version 1)
Quarter: 2021Q2

REPORT INFORMATION
  Report Type: Report from Study
  Country: US (occurrence: US)
  Receive Date: 20210607
  Receipt Date: 20210607
  Transmission Date: 20210717
  Serious: No
  Sender: FDA-Public Use
  Company Number: US-AIMMUNE THERAPEUTICS, INC.-2021AIMT00308

PATIENT

DRUGS (1)
  1. PEANUT (ARACHIS HYPOGAEA) ALLERGEN POWDER ? DNFP [Suspect]
     Active Substance: ALLERGENIC EXTRACT- PEANUT ARACHIS HYPOGAEA
     Indication: FOOD ALLERGY
     Dosage: 20 MG, 1X/DAY
     Route: 048

REACTIONS (1)
  - Abdominal discomfort [Unknown]
